FAERS Safety Report 8151135-1 (Version None)
Quarter: 2012Q1

REPORT INFORMATION
  Report Type: 
  Country: None (occurrence: None)
  Receive Date: 20120220
  Receipt Date: 20120214
  Transmission Date: 20120608
  Serious: Yes (Congenital Anomaly)
  Sender: FDA-Public Use
  Company Number: US-GLAXOSMITHKLINE-A0963986A

PATIENT
  Sex: Female
  Weight: 3.6 kg

DRUGS (7)
  1. MACROBID [Concomitant]
     Dates: start: 20030601
  2. PAROXETINE HYDROCHLORIDE [Suspect]
     Indication: STRESS AT WORK
     Route: 064
     Dates: start: 20031001
  3. ALBUTEROL [Concomitant]
  4. PAXIL [Suspect]
     Indication: STRESS AT WORK
     Route: 064
     Dates: start: 20020101
  5. IRON [Concomitant]
  6. PREVACID [Concomitant]
  7. MULTI-VITAMINS [Concomitant]

REACTIONS (6)
  - FOOT DEFORMITY [None]
  - TALIPES [None]
  - ATRIAL SEPTAL DEFECT [None]
  - FOETAL EXPOSURE DURING PREGNANCY [None]
  - KNEE DEFORMITY [None]
  - PATENT DUCTUS ARTERIOSUS [None]
